FAERS Safety Report 8802840 (Version 2)
Quarter: 2015Q2

REPORT INFORMATION
  Report Type: Report from Study
  Country: US (occurrence: US)
  Receive Date: 20120921
  Receipt Date: 20150618
  Transmission Date: 20150821
  Serious: Yes (Death)
  Sender: FDA-Public Use
  Company Number: US-ROCHE-1124428

PATIENT
  Sex: Male

DRUGS (5)
  1. AVASTIN [Suspect]
     Active Substance: BEVACIZUMAB
     Indication: PANCREATIC CARCINOMA
     Dosage: WITH 100 CC NORMAL SALINE
     Route: 042
     Dates: start: 20070124
  2. DECADRON [Concomitant]
     Active Substance: DEXAMETHASONE
     Dosage: WITH 50 CC NORMAL SALINE
     Route: 042
  3. ALOXI [Concomitant]
     Active Substance: PALONOSETRON HYDROCHLORIDE
     Route: 042
  4. GEMZAR [Concomitant]
     Active Substance: GEMCITABINE HYDROCHLORIDE
     Dosage: WITH 250 CC NORMAL SALINE
     Route: 042
  5. ARANESP [Concomitant]
     Active Substance: DARBEPOETIN ALFA
     Route: 042

REACTIONS (4)
  - Off label use [Unknown]
  - Pain [Unknown]
  - Fatigue [Unknown]
  - Death [Fatal]
